FAERS Safety Report 7605539-3 (Version None)
Quarter: 2011Q3

REPORT INFORMATION
  Report Type: 
  Country: None (occurrence: None)
  Receive Date: 20110713
  Receipt Date: 20110708
  Transmission Date: 20111222
  Serious: No
  Sender: FDA-Public Use
  Company Number: US-PFIZER INC-2011154617

PATIENT
  Sex: Male
  Weight: 72.562 kg

DRUGS (2)
  1. DEPO-TESTOSTERONE [Suspect]
     Indication: BLOOD TESTOSTERONE DECREASED
     Dosage: 200 MG, UNK
     Route: 030
     Dates: start: 20110614
  2. SYNTHROID [Concomitant]
     Indication: HYPOTHYROIDISM
     Dosage: UNK

REACTIONS (2)
  - SLEEP DISORDER [None]
  - INCREASED APPETITE [None]
